FAERS Safety Report 17828312 (Version 13)
Quarter: 2021Q2

REPORT INFORMATION
  Report Type: Report from Study
  Country: US (occurrence: US)
  Receive Date: 20200527
  Receipt Date: 20210528
  Transmission Date: 20210717
  Serious: Yes (Other)
  Sender: FDA-Public Use
  Company Number: US-GLAXOSMITHKLINE-US2020AMR058737

PATIENT
  Age: 67 Year
  Sex: Female

DRUGS (15)
  1. NIRAPARIB [Suspect]
     Active Substance: NIRAPARIB
     Dosage: 300 MG, QD
     Dates: start: 20200408
  2. NIRAPARIB [Suspect]
     Active Substance: NIRAPARIB
     Dosage: 200 MG, QD
  3. NIRAPARIB [Suspect]
     Active Substance: NIRAPARIB
     Dosage: 2 DF, QD
     Dates: start: 20200520
  4. NIRAPARIB [Suspect]
     Active Substance: NIRAPARIB
     Dosage: 200 MG, QD
  5. NIRAPARIB [Suspect]
     Active Substance: NIRAPARIB
     Dosage: 200 MG, QD
  6. TAMOXIFEN [Suspect]
     Active Substance: TAMOXIFEN
     Indication: PRODUCT USED FOR UNKNOWN INDICATION
     Dosage: 20 MG, BID (2 PER DAY)
     Route: 048
  7. NIRAPARIB [Suspect]
     Active Substance: NIRAPARIB
     Dosage: 200 MG, QD
     Dates: start: 20200504
  8. NIRAPARIB [Suspect]
     Active Substance: NIRAPARIB
     Dosage: 200 MG, QD
     Dates: start: 20200506
  9. NIRAPARIB [Suspect]
     Active Substance: NIRAPARIB
     Indication: OVARIAN CANCER
     Dosage: 300 MG, QD
     Dates: start: 202001
  10. NIRAPARIB [Suspect]
     Active Substance: NIRAPARIB
     Dosage: 200 MG, QD 6PM WITH FOOD
  11. COVID 19 VACCINE [Concomitant]
     Indication: COVID-19 PROPHYLAXIS
     Dosage: UNK
  12. NIRAPARIB [Suspect]
     Active Substance: NIRAPARIB
     Dosage: 200 MG, QD
     Dates: start: 202001
  13. NIRAPARIB [Suspect]
     Active Substance: NIRAPARIB
     Dosage: 100 MG, QD
     Dates: start: 202001, end: 202004
  14. NIRAPARIB [Suspect]
     Active Substance: NIRAPARIB
     Dosage: 200 MG, QD
  15. NIRAPARIB [Suspect]
     Active Substance: NIRAPARIB
     Dosage: 200 MG, QD
     Route: 048

REACTIONS (36)
  - Neuropathy peripheral [Unknown]
  - Bone pain [Not Recovered/Not Resolved]
  - Arthralgia [Not Recovered/Not Resolved]
  - Illness [Unknown]
  - Renal disorder [Unknown]
  - Heart rate irregular [Recovering/Resolving]
  - Adverse drug reaction [Not Recovered/Not Resolved]
  - Fluid intake restriction [Recovering/Resolving]
  - Blood creatinine increased [Not Recovered/Not Resolved]
  - Head discomfort [Unknown]
  - Chest discomfort [Unknown]
  - Gait inability [Unknown]
  - Drug intolerance [Unknown]
  - Product dose omission issue [Unknown]
  - Constipation [Not Recovered/Not Resolved]
  - Nodule [Not Recovered/Not Resolved]
  - Carbohydrate antigen 125 increased [Not Recovered/Not Resolved]
  - Blood parathyroid hormone increased [Unknown]
  - Asthenia [Unknown]
  - Palpitations [Not Recovered/Not Resolved]
  - Hot flush [Not Recovered/Not Resolved]
  - Vomiting [Not Recovered/Not Resolved]
  - Blood follicle stimulating hormone increased [Unknown]
  - Insomnia [Recovering/Resolving]
  - Paranasal sinus discomfort [Unknown]
  - Periarthritis [Unknown]
  - Hormone receptor positive breast cancer [Unknown]
  - Positron emission tomogram abnormal [Unknown]
  - Dry mouth [Unknown]
  - Dyspnoea [Not Recovered/Not Resolved]
  - Nausea [Not Recovered/Not Resolved]
  - Weight decreased [Recovered/Resolved]
  - Complication associated with device [Unknown]
  - Hypertension [Recovered/Resolved]
  - Dyspnoea exertional [Not Recovered/Not Resolved]
  - Blood oestrogen increased [Not Recovered/Not Resolved]

NARRATIVE: CASE EVENT DATE: 20200420
